FAERS Safety Report 5299939-7 (Version None)
Quarter: 2007Q2

REPORT INFORMATION
  Report Type: 
  Country: None (occurrence: None)
  Receive Date: 20070410
  Receipt Date: 20070402
  Transmission Date: 20071010
  Serious: Yes (Hospitalization)
  Sender: FDA-Public Use
  Company Number: D0052745A

PATIENT
  Age: 38 Year
  Sex: Female
  Weight: 55.8832 kg

DRUGS (1)
  1. ESKALITH [Suspect]
     Dosage: 450 MG / SEE DOSAGE TEXT / ORAL
     Route: 048
     Dates: start: 20070324, end: 20070324

REACTIONS (5)
  - DIARRHOEA [None]
  - DRUG EXPOSURE DURING PREGNANCY [None]
  - INTENTIONAL OVERDOSE [None]
  - PREGNANCY [None]
  - VOMITING [None]
